FAERS Safety Report 4836807-6 (Version None)
Quarter: 2005Q4

REPORT INFORMATION
  Report Type: 
  Country: None (occurrence: None)
  Receive Date: 20051123
  Receipt Date: 20051004
  Transmission Date: 20060501
  Serious: Yes (Hospitalization, Other)
  Sender: FDA-Public Use
  Company Number: US-MERCK-0510USA02300

PATIENT
  Age: 59 Year
  Sex: Male
  Weight: 118 kg

DRUGS (17)
  1. VIOXX [Suspect]
     Indication: SPONDYLITIS
     Route: 048
     Dates: end: 20040927
  2. VIOXX [Suspect]
     Route: 048
     Dates: start: 20000516
  3. VIOXX [Suspect]
     Route: 048
     Dates: end: 20010830
  4. GLUCOPHAGE [Concomitant]
     Route: 048
  5. PRILOSEC [Concomitant]
     Route: 065
  6. LIPITOR [Concomitant]
     Route: 065
  7. LANOXIN [Concomitant]
     Route: 065
  8. DIOVAN [Concomitant]
     Route: 048
  9. COLCHICINE [Concomitant]
     Route: 065
  10. K-DUR 10 [Concomitant]
     Route: 065
  11. GEMFIBROZIL [Concomitant]
     Route: 065
  12. ALLOPURINOL [Concomitant]
     Route: 065
  13. NITRO-DUR [Concomitant]
     Route: 061
  14. TOPROL-XL [Concomitant]
     Route: 048
  15. TOPROL-XL [Concomitant]
     Route: 048
  16. AVANDIA [Concomitant]
     Route: 048
  17. LORTAB [Concomitant]
     Route: 065

REACTIONS (10)
  - ANGINA PECTORIS [None]
  - ANGINA UNSTABLE [None]
  - BENIGN PROSTATIC HYPERPLASIA [None]
  - CORONARY ARTERY DISEASE [None]
  - DIABETES MELLITUS [None]
  - FACIAL PALSY [None]
  - GASTRITIS [None]
  - LACUNAR INFARCTION [None]
  - LUNG DISORDER [None]
  - RENAL FAILURE [None]
